FAERS Safety Report 8990597 (Version 2)
Quarter: 2016Q4

REPORT INFORMATION
  Report Type: Spontaneous
  Country: US (occurrence: US)
  Receive Date: 20121228
  Receipt Date: 20161104
  Transmission Date: 20170207
  Serious: Yes (Hospitalization, Other)
  Sender: FDA-Public Use
  Company Number: US-009507513-1203USA01855

PATIENT
  Sex: Female
  Weight: 63.5 kg

DRUGS (9)
  1. CHONDROITIN SULFATE SODIUM (+) GLUCOSAMINE SULFATE [Concomitant]
     Dates: start: 1990
  2. VITAMIN E [Concomitant]
     Active Substance: .ALPHA.-TOCOPHEROL
     Dates: start: 1990
  3. FOSAMAX [Suspect]
     Active Substance: ALENDRONATE SODIUM
     Dosage: 70 MG, QW
     Route: 048
     Dates: start: 20051117, end: 20080319
  4. FOSAMAX [Suspect]
     Active Substance: ALENDRONATE SODIUM
     Dosage: 70 MG, UNKNOWN
     Route: 048
     Dates: start: 20080215, end: 200809
  5. FOSAMAX [Suspect]
     Active Substance: ALENDRONATE SODIUM
     Indication: OSTEOPOROSIS
     Dosage: 10 MG, QD
     Route: 048
     Dates: start: 1998, end: 200510
  6. VITAMINS (UNSPECIFIED) [Concomitant]
     Active Substance: VITAMINS
     Dates: start: 1990
  7. ALENDRONATE SODIUM. [Suspect]
     Active Substance: ALENDRONATE SODIUM
     Indication: OSTEOPOROSIS
     Dosage: 70 MG, UNKNOWN
     Route: 048
     Dates: start: 20080830, end: 201006
  8. ICAPS [Concomitant]
     Active Substance: MINERALS\VITAMINS
     Dates: start: 1990
  9. ONE-A-DAY WOMEN^S [Suspect]
     Active Substance: VITAMINS

REACTIONS (68)
  - Hypoxia [Unknown]
  - Cholecystectomy [Unknown]
  - Gallbladder operation [Unknown]
  - Irritable bowel syndrome [Unknown]
  - Kyphosis [Unknown]
  - Cardiomegaly [Unknown]
  - Aortic valve sclerosis [Unknown]
  - Uterine leiomyoma [Unknown]
  - Pain in extremity [Not Recovered/Not Resolved]
  - Lumbar spinal stenosis [Unknown]
  - Leukocytosis [Unknown]
  - Cataract [Unknown]
  - Hypertension [Unknown]
  - Neck injury [Unknown]
  - Cervical radiculopathy [Unknown]
  - Myocardial ischaemia [Unknown]
  - Cataract operation [Unknown]
  - Phlebolith [Unknown]
  - Rash [Unknown]
  - Femur fracture [Unknown]
  - Thrombocytopenia [Unknown]
  - Staphylococcal infection [Unknown]
  - Carpal tunnel syndrome [Unknown]
  - Atrophic vulvovaginitis [Unknown]
  - Scoliosis [Unknown]
  - Aortic disorder [Unknown]
  - Large intestine polyp [Unknown]
  - Back pain [Unknown]
  - Rash [Unknown]
  - Spondylolisthesis [Unknown]
  - Thrombophlebitis septic [Unknown]
  - Trigger finger [Unknown]
  - Dermatitis allergic [Unknown]
  - Lumbar radiculopathy [Unknown]
  - Aortic valve incompetence [Unknown]
  - Spinal compression fracture [Unknown]
  - Hip fracture [Unknown]
  - Head injury [Unknown]
  - Osteopenia [Unknown]
  - Diverticulum [Unknown]
  - Thalassaemia beta [Unknown]
  - Adverse event [Unknown]
  - Cataract [Unknown]
  - Surgery [Unknown]
  - Wound [Unknown]
  - Osteoarthritis [Unknown]
  - Fall [Not Recovered/Not Resolved]
  - Dyspnoea [Unknown]
  - Rheumatoid arthritis [Unknown]
  - Post laminectomy syndrome [Unknown]
  - Intervertebral disc degeneration [Unknown]
  - Aortic arteriosclerosis [Unknown]
  - Nerve compression [Not Recovered/Not Resolved]
  - Chronic obstructive pulmonary disease [Unknown]
  - Body height decreased [Unknown]
  - Spinal osteoarthritis [Unknown]
  - Fracture [Unknown]
  - Gastrooesophageal reflux disease [Unknown]
  - Fall [Unknown]
  - Stress [Unknown]
  - Fall [Unknown]
  - Pain in extremity [Unknown]
  - Dehydration [Unknown]
  - Anaemia [Unknown]
  - Osteoarthritis [Unknown]
  - Hypercholesterolaemia [Unknown]
  - Hypertriglyceridaemia [Unknown]
  - Muscle strain [Unknown]

NARRATIVE: CASE EVENT DATE: 1998
